FAERS Safety Report 9068683 (Version 1)
Quarter: 2013Q1

REPORT INFORMATION
  Report Type: Spontaneous
  Country: US (occurrence: None)
  Receive Date: 20130212
  Receipt Date: 20130212
  Transmission Date: 20140127
  Serious: Yes (Other)
  Sender: FDA-Public Use
  Company Number: None

PATIENT
  Age: 46 Year
  Sex: Female

DRUGS (2)
  1. ACTEMRA [Suspect]
     Indication: RHEUMATOID ARTHRITIS
     Dosage: 280 MG Q4 WEEKS  IV
     Route: 042
     Dates: start: 20120801, end: 20121115
  2. ACTEMRA [Suspect]

REACTIONS (2)
  - Rectal haemorrhage [None]
  - Infection [None]
